FAERS Safety Report 23652375 (Version 1)
Quarter: 2024Q1

REPORT INFORMATION
  Report Type: Spontaneous
  Country: DE (occurrence: DE)
  Receive Date: 20240320
  Receipt Date: 20240320
  Transmission Date: 20240410
  Serious: Yes (Other)
  Sender: FDA-Public Use
  Company Number: DE-DEVATIS-2024-00149

PATIENT
  Sex: Female

DRUGS (1)
  1. LETROZOLE [Suspect]
     Active Substance: LETROZOLE
     Indication: Product used for unknown indication
     Dosage: UNK
     Route: 065
     Dates: start: 202309

REACTIONS (7)
  - Tendon rupture [Unknown]
  - Tendon pain [Unknown]
  - Peripheral swelling [Unknown]
  - Pain in extremity [Unknown]
  - Dermatitis [Unknown]
  - Muscle spasms [Unknown]
  - Pain in extremity [Unknown]

NARRATIVE: CASE EVENT DATE: 20231101
